FAERS Safety Report 22884396 (Version 2)
Quarter: 2023Q4

REPORT INFORMATION
  Report Type: Spontaneous
  Country: BR (occurrence: BR)
  Receive Date: 20230830
  Receipt Date: 20231004
  Transmission Date: 20240109
  Serious: Yes (Death, Life-Threatening, Other)
  Sender: FDA-Public Use
  Company Number: BR-GE HEALTHCARE-2023CSU007284

PATIENT
  Age: 82 Year
  Sex: Female

DRUGS (2)
  1. OMNISCAN [Suspect]
     Active Substance: GADODIAMIDE
     Indication: Magnetic resonance imaging spinal
     Dosage: 10 ML, SINGLE
     Route: 042
     Dates: start: 20230720, end: 20230720
  2. OMNISCAN [Suspect]
     Active Substance: GADODIAMIDE
     Indication: Sciatica

REACTIONS (8)
  - Hemiplegia [Fatal]
  - Oxygen saturation decreased [Fatal]
  - Motor dysfunction [Fatal]
  - Nervous system disorder [Fatal]
  - Cerebrovascular accident [Fatal]
  - Disorientation [Fatal]
  - Dizziness [Fatal]
  - Headache [Fatal]

NARRATIVE: CASE EVENT DATE: 20230720
